FAERS Safety Report 5371755-7 (Version None)
Quarter: 2007Q2

REPORT INFORMATION
  Report Type: 
  Country: None (occurrence: None)
  Receive Date: 20070619
  Receipt Date: 20070306
  Transmission Date: 20071010
  Serious: No
  Sender: FDA-Public Use
  Company Number: 2007US000569

PATIENT
  Age: 84 Year
  Sex: Female

DRUGS (13)
  1. VESICARE [Suspect]
     Indication: URINARY INCONTINENCE
     Dosage: 10 MG, ORAL
     Route: 048
     Dates: start: 20060714, end: 20060719
  2. CARBATROL [Concomitant]
  3. DITROPAN [Concomitant]
  4. HYDRALAZINE (HYDRAZALINE) [Concomitant]
  5. K-DUR 10 [Concomitant]
  6. ASPIRIN [Concomitant]
  7. DIOVAN [Concomitant]
  8. FOLTX (FOLIC ACID, PYRIDOXINE) [Concomitant]
  9. PREVACID [Concomitant]
  10. PLENDIL [Concomitant]
  11. ALTACE [Concomitant]
  12. LIPITOR [Concomitant]
  13. ATENOLOL [Concomitant]

REACTIONS (1)
  - DIZZINESS [None]
